FAERS Safety Report 12904761 (Version 3)
Quarter: 2016Q4

REPORT INFORMATION
  Report Type: Spontaneous
  Country: CN (occurrence: CN)
  Receive Date: 20161102
  Receipt Date: 20161111
  Transmission Date: 20170207
  Serious: Yes (Other)
  Sender: FDA-Public Use
  Company Number: CN-GLAXOSMITHKLINE-CN2016GSK157756

PATIENT
  Age: 50 Year
  Sex: Female
  Weight: 65 kg

DRUGS (4)
  1. SERETIDE [Suspect]
     Active Substance: FLUTICASONE PROPIONATE\SALMETEROL XINAFOATE
     Indication: ASTHMA
     Dosage: 1 PUFF(S), QD
     Route: 055
     Dates: start: 2013
  2. SERETIDE [Suspect]
     Active Substance: FLUTICASONE PROPIONATE\SALMETEROL XINAFOATE
     Dosage: 1 PUFF(S), UNK
     Dates: start: 20161023
  3. SERETIDE [Suspect]
     Active Substance: FLUTICASONE PROPIONATE\SALMETEROL XINAFOATE
     Dosage: UNK
  4. SERETIDE [Suspect]
     Active Substance: FLUTICASONE PROPIONATE\SALMETEROL XINAFOATE
     Dosage: 1 PUFF(S), UNK
     Dates: start: 20161024, end: 20161024

REACTIONS (4)
  - Anomalous atrioventricular excitation [Recovering/Resolving]
  - Angina pectoris [Unknown]
  - Drug effect decreased [Unknown]
  - Palpitations [Recovering/Resolving]
